FAERS Safety Report 5350505-4 (Version None)
Quarter: 2007Q2

REPORT INFORMATION
  Report Type: 
  Country: None (occurrence: None)
  Receive Date: 20070605
  Receipt Date: 20070605
  Transmission Date: 20071010
  Serious: Yes (Hospitalization)
  Sender: FDA-Public Use
  Company Number: None

PATIENT
  Sex: Female
  Weight: 54.6 kg

DRUGS (3)
  1. FLUOROURACIL [Suspect]
     Dosage: 6890 MG
     Dates: end: 20070207
  2. BEVACIZUMAB (RHUMAB VEGF) [Suspect]
     Dosage: 580 MG
     Dates: end: 20070205
  3. ELOXATIN [Suspect]
     Dosage: 200 MG
     Dates: end: 20070205

REACTIONS (5)
  - ANAEMIA [None]
  - BACTEROIDES INFECTION [None]
  - DISORIENTATION [None]
  - SEPSIS [None]
  - TREMOR [None]
